FAERS Safety Report 6527272-1 (Version None)
Quarter: 2010Q1

REPORT INFORMATION
  Report Type: 
  Country: None (occurrence: None)
  Receive Date: 20100105
  Receipt Date: 20091224
  Transmission Date: 20100710
  Serious: Yes (Death)
  Sender: FDA-Public Use
  Company Number: JP-PFIZER INC-2009288836

PATIENT
  Age: 56 Year
  Sex: Male

DRUGS (7)
  1. SUNITINIB MALATE [Suspect]
     Indication: RENAL CELL CARCINOMA
     Dosage: 25 MG,
     Route: 048
     Dates: start: 20081126, end: 20091013
  2. GLYCYRON [Concomitant]
     Route: 048
     Dates: start: 20081130
  3. NAIXAN [Concomitant]
     Route: 048
     Dates: start: 20081130
  4. THYRADIN S [Concomitant]
     Route: 048
     Dates: start: 20081004
  5. LASIX [Concomitant]
     Route: 048
     Dates: start: 20090105
  6. OMEPRAL [Concomitant]
     Route: 048
     Dates: start: 20090120
  7. UREPEARL [Concomitant]
     Route: 062
     Dates: start: 20090105

REACTIONS (2)
  - HEPATIC FAILURE [None]
  - HEPATIC FUNCTION ABNORMAL [None]
